FAERS Safety Report 5297722-X (Version None)
Quarter: 2007Q2

REPORT INFORMATION
  Report Type: 
  Country: None (occurrence: None)
  Receive Date: 20070412
  Receipt Date: 20070412
  Transmission Date: 20071010
  Serious: Yes (Hospitalization)
  Sender: FDA-Public Use
  Company Number: None

PATIENT
  Sex: Female
  Weight: 53.5 kg

DRUGS (7)
  1. FLUOROURACIL [Suspect]
     Dosage: 4702 MG
  2. CETUXIMAB (ERBITUX; MOAB; C225 CHIMERIC MONOCLONAL ANTIBODY) (IMCLONE/ [Suspect]
     Dosage: 1062 MG
  3. LEUCOVORIN CALCIUM [Suspect]
     Dosage: 670 MG
  4. ELOXATIN [Suspect]
     Dosage: 142 MG
  5. LEXAPRO [Concomitant]
  6. FENTANYL TRANSDERMAL SYSTEM [Concomitant]
  7. OXYCONTIN IR [Concomitant]

REACTIONS (3)
  - DEHYDRATION [None]
  - HYPOXIA [None]
  - METABOLIC ACIDOSIS [None]
